FAERS Safety Report 9246308 (Version 1)
Quarter: 2013Q2

REPORT INFORMATION
  Report Type: Spontaneous
  Country: NL (occurrence: NL)
  Receive Date: 20130422
  Receipt Date: 20130422
  Transmission Date: 20140414
  Serious: Yes (Life-Threatening, Hospitalization, Other)
  Sender: FDA-Public Use
  Company Number: NL-PFIZER INC-2013124339

PATIENT
  Age: 45 Year
  Sex: Male
  Weight: 60 kg

DRUGS (4)
  1. LYRICA [Suspect]
     Indication: NEURALGIA
     Dosage: 75 MG, 2X/DAY
     Dates: start: 20130318
  2. PAROXETINE [Concomitant]
     Dosage: 20 MG, UNK
     Dates: start: 2010
  3. AMLODIPINE BESILATE [Concomitant]
     Dosage: 10 MG, 1X/DAY
     Dates: start: 201203
  4. OMEPRAZOLE [Concomitant]
     Dosage: 1 DF, 1X/DAY
     Dates: start: 2011

REACTIONS (2)
  - Suicide attempt [Recovering/Resolving]
  - Suicidal ideation [Unknown]
